FAERS Safety Report 7808960-3 (Version None)
Quarter: 2011Q4

REPORT INFORMATION
  Report Type: 
  Country: None (occurrence: None)
  Receive Date: 20111012
  Receipt Date: 20111002
  Transmission Date: 20120403
  Serious: Yes (Other)
  Sender: FDA-Public Use
  Company Number: BR-SANOFI-AVENTIS-2011SA064827

PATIENT
  Age: 43 Year
  Sex: Male
  Weight: 81 kg

DRUGS (5)
  1. VENLAFAXINE [Concomitant]
     Route: 048
     Dates: start: 20100101
  2. ALLEGRA D 24 HOUR [Suspect]
     Indication: SINUSITIS
     Route: 048
     Dates: start: 20110901, end: 20111001
  3. CLONAZEPAM [Concomitant]
     Dosage: DOSE: NO MORE THAN 6MG
     Route: 048
     Dates: start: 20100101
  4. PLANTABEN [Concomitant]
     Indication: GASTROINTESTINAL DISORDER
     Route: 048
     Dates: start: 20100101
  5. MEBEVERINE [Concomitant]
     Indication: GASTROINTESTINAL DISORDER
     Route: 048
     Dates: start: 20100101

REACTIONS (1)
  - MELAENA [None]
